FAERS Safety Report 11766948 (Version 3)
Quarter: 2015Q4

REPORT INFORMATION
  Report Type: Spontaneous
  Country: FR (occurrence: FR)
  Receive Date: 20151123
  Receipt Date: 20151203
  Transmission Date: 20160304
  Serious: Yes (Hospitalization, Other)
  Sender: FDA-Public Use
  Company Number: FR-009507513-1511FRA011233

PATIENT
  Age: 57 Year
  Sex: Male

DRUGS (5)
  1. NOXAFIL [Suspect]
     Active Substance: POSACONAZOLE
     Dosage: 400 MG (4 TABLETS), BID
     Route: 048
     Dates: start: 20150915, end: 20150918
  2. NOXAFIL [Suspect]
     Active Substance: POSACONAZOLE
     Dosage: 300 MG (3 TABLETS), BID
     Route: 048
     Dates: start: 20150919, end: 20150921
  3. NOXAFIL [Suspect]
     Active Substance: POSACONAZOLE
     Dosage: 400 MG (4 TABLETS), ONCE
     Route: 048
     Dates: start: 20150914, end: 20150914
  4. NOXAFIL [Suspect]
     Active Substance: POSACONAZOLE
     Dosage: 200 MG (2 TABLETS), BID
     Route: 048
     Dates: start: 20150922, end: 20150926
  5. NOXAFIL [Suspect]
     Active Substance: POSACONAZOLE
     Dosage: UNK
     Route: 048
     Dates: start: 2010, end: 2011

REACTIONS (10)
  - Musculoskeletal pain [Recovered/Resolved]
  - Dry mouth [Recovered/Resolved]
  - Epistaxis [Recovered/Resolved]
  - Pyrexia [Recovered/Resolved]
  - Chest pain [Recovered/Resolved]
  - Oedema peripheral [Recovered/Resolved]
  - Fatigue [Recovered/Resolved]
  - Medication error [Unknown]
  - Hypokalaemia [Recovered/Resolved]
  - Transaminases increased [Recovered/Resolved]

NARRATIVE: CASE EVENT DATE: 20150914
